FAERS Safety Report 23651313 (Version 1)
Quarter: 2024Q1

REPORT INFORMATION
  Report Type: Spontaneous
  Country: IT (occurrence: IT)
  Receive Date: 20240320
  Receipt Date: 20240320
  Transmission Date: 20240410
  Serious: Yes (Other)
  Sender: FDA-Public Use
  Company Number: None

PATIENT
  Age: 60 Year
  Sex: Male

DRUGS (3)
  1. OLANZAPINE [Suspect]
     Active Substance: OLANZAPINE
     Indication: Bipolar disorder
     Dosage: OLANZAPINE TEVA*28CPR GOLD 10MG - 2 TABLETS/DAY IN THE EVENING?OLANZAPINA TEVA
     Route: 048
     Dates: start: 20210222, end: 202310
  2. ALFUZOSINA PENSA [Concomitant]
     Indication: Benign prostatic hyperplasia
     Dosage: ALFUZOSIN PENSA*30CPR 10MG RP - 1 TABLET/DAY
     Route: 048
     Dates: start: 2023
  3. OLMESARTAN MEDOXOMIL [Concomitant]
     Active Substance: OLMESARTAN MEDOXOMIL
     Indication: Hypertension
     Dosage: OLMESARTAN DOC*28CPR RIV 20MG - 1 CP/DAY
     Route: 048
     Dates: start: 2023

REACTIONS (5)
  - Neuropathy peripheral [Recovered/Resolved]
  - Paraesthesia [Recovered/Resolved]
  - Hot flush [Recovered/Resolved]
  - Hypoaesthesia [Recovered/Resolved]
  - Burning sensation [Recovered/Resolved]

NARRATIVE: CASE EVENT DATE: 20230901
